FAERS Safety Report 10647558 (Version 1)
Quarter: 2014Q4

REPORT INFORMATION
  Report Type: Spontaneous
  Country: US (occurrence: US)
  Receive Date: 20141211
  Receipt Date: 20141211
  Transmission Date: 20150529
  Serious: No
  Sender: FDA-Public Use
  Company Number: US-TEVA-520347USA

PATIENT
  Sex: Female

DRUGS (1)
  1. COPAXONE [Suspect]
     Active Substance: GLATIRAMER ACETATE
     Indication: MULTIPLE SCLEROSIS
     Route: 065

REACTIONS (8)
  - Erythema [Unknown]
  - Injection site bruising [Unknown]
  - Hyperhidrosis [Unknown]
  - Pain [Unknown]
  - Flushing [Unknown]
  - Hypoaesthesia [Unknown]
  - Injection site urticaria [Unknown]
  - Anxiety [Unknown]
